FAERS Safety Report 9910777 (Version 2)
Quarter: 2014Q1

REPORT INFORMATION
  Report Type: Spontaneous
  Country: IT (occurrence: IT)
  Receive Date: 20140219
  Receipt Date: 20140225
  Transmission Date: 20141002
  Serious: Yes (Other)
  Sender: FDA-Public Use
  Company Number: IT-TEVA-463299ISR

PATIENT
  Age: 57 Year
  Sex: Male

DRUGS (4)
  1. OXALIPLATIN [Suspect]
     Indication: COLON NEOPLASM
     Dosage: 130 MG CYCLICAL
     Route: 042
     Dates: start: 20110101, end: 20120127
  2. FLUOROURACIL [Suspect]
     Indication: COLON NEOPLASM
     Dosage: 2600 MG CYCLICAL
     Route: 042
     Dates: start: 20110101, end: 20120127
  3. AVASTIN - CONCENTRATO PER SOLUZIONE PER INFUSIONE [Suspect]
     Indication: COLON NEOPLASM
     Dosage: 300 MG CYCLICAL. CONCENTRATE FOR SOLUTION FOR INFUSION
     Route: 042
     Dates: start: 20110101, end: 20120127
  4. VALSARTAN + HYDROCHLOROTHIAZIDE [Concomitant]
     Indication: HYPERTENSION

REACTIONS (1)
  - Deep vein thrombosis [Recovering/Resolving]
